FAERS Safety Report 8877439 (Version 1)
Quarter: 2012Q4

REPORT INFORMATION
  Report Type: 
  Country: US (occurrence: US)
  Receive Date: 20121024
  Receipt Date: 20121024
  Transmission Date: 20130627
  Serious: No
  Sender: FDA-Public Use
  Company Number: US-PFIZER INC-2012262262

PATIENT
  Sex: Female

DRUGS (2)
  1. CYTOMEL [Suspect]
     Indication: THYROID DISORDER
     Dosage: UNK
     Route: 048
     Dates: start: 2010
  2. CYTOMEL [Suspect]
     Dosage: half of 25 ?g tablet, daily
     Route: 048

REACTIONS (2)
  - Product quality issue [Not Recovered/Not Resolved]
  - Hypersensitivity [Not Recovered/Not Resolved]
